FAERS Safety Report 12000625 (Version 1)
Quarter: 2016Q1

REPORT INFORMATION
  Report Type: Report from Study
  Country: US (occurrence: US)
  Receive Date: 20160204
  Receipt Date: 20160204
  Transmission Date: 20160526
  Serious: Yes (Hospitalization, Other)
  Sender: FDA-Public Use
  Company Number: US-MYLANLABS-2016M1004504

PATIENT

DRUGS (2)
  1. ERLOTINIB [Suspect]
     Active Substance: ERLOTINIB
     Indication: NON-SMALL CELL LUNG CANCER
     Dosage: 150MG DAILY
     Route: 048
  2. ROMIDEPSIN [Suspect]
     Active Substance: ROMIDEPSIN
     Indication: NON-SMALL CELL LUNG CANCER
     Dosage: 4-HOUR INFUSION ON DAYS 1,8 AND 15 (28-DAY CYCLE)
     Route: 041

REACTIONS (5)
  - Diarrhoea [Unknown]
  - Acute kidney injury [Not Recovered/Not Resolved]
  - Sinus tachycardia [Unknown]
  - Vomiting [Unknown]
  - Nausea [Unknown]
